FAERS Safety Report 5410514-3 (Version None)
Quarter: 2007Q3

REPORT INFORMATION
  Report Type: 
  Country: None (occurrence: None)
  Receive Date: 20070810
  Receipt Date: 20070206
  Transmission Date: 20080115
  Serious: No
  Sender: FDA-Public Use
  Company Number: A0638555A

PATIENT
  Age: 35 Year
  Sex: Female

DRUGS (3)
  1. PAROXETINE [Suspect]
     Indication: DEPRESSION
     Dosage: 20MG PER DAY
     Route: 048
     Dates: end: 20070131
  2. WELLBUTRIN XL [Suspect]
     Indication: DEPRESSION
     Dosage: 150MG PER DAY
     Route: 048
     Dates: start: 20070205
  3. BACLOFEN [Concomitant]

REACTIONS (2)
  - ANORGASMIA [None]
  - HYPERHIDROSIS [None]
